FAERS Safety Report 5372541-4 (Version None)
Quarter: 2007Q2

REPORT INFORMATION
  Report Type: 
  Country: None (occurrence: None)
  Receive Date: 20070626
  Receipt Date: 20070613
  Transmission Date: 20071010
  Serious: Yes (Other)
  Sender: FDA-Public Use
  Company Number: 112024ISR

PATIENT
  Age: 36 Year
  Sex: Male

DRUGS (3)
  1. CISPLATIN [Suspect]
     Indication: TESTIS CANCER
     Dosage: 1 CYCLE (40 MG/M2, 1 IN 1 D)
  2. ETOPOSIDE [Suspect]
     Indication: TESTIS CANCER
     Dosage: 165 MG/M2, 1 IN 1 D)
  3. DEXAMETHASONE 0.5MG TAB [Suspect]
     Indication: TESTIS CANCER
     Dosage: SEE IMAGE
     Route: 048

REACTIONS (2)
  - GAIT DISTURBANCE [None]
  - OSTEONECROSIS [None]
